FAERS Safety Report 16831087 (Version 1)
Quarter: 2019Q3

REPORT INFORMATION
  Report Type: Spontaneous
  Country: ES (occurrence: ES)
  Receive Date: 20190920
  Receipt Date: 20190920
  Transmission Date: 20191005
  Serious: Yes (Other)
  Sender: FDA-Public Use
  Company Number: ES-TEVA-2019-ES-1110345

PATIENT
  Age: 58 Year
  Sex: Female

DRUGS (10)
  1. ELONTRIL 150MG 30 COMPRIMIDOS LIBERACION MODIFICADA [Interacting]
     Active Substance: BUPROPION HYDROCHLORIDE
     Indication: ADJUSTMENT DISORDER WITH DEPRESSED MOOD
     Dosage: 150 MG ORAL EVERY 24 HOURS. (1-0-0); 30 TABLETS.
     Route: 048
     Dates: start: 20190816, end: 20190817
  2. ADOLONTA RETARD 100 MG COMPRIMIDOS DE LIBERACION PROLONGADA, 60 COMPRI [Interacting]
     Active Substance: TRAMADOL HYDROCHLORIDE
     Dosage: 100 MG 1 EVERY 12 HOURS; 60 TABLETS;
     Route: 048
     Dates: start: 2016
  3. LEXATIN 3 MG CAPSULAS DURAS , 30 C?PSULAS [Concomitant]
     Dosage: 30 CAPSULES
     Route: 048
  4. CYMBALTA [Interacting]
     Active Substance: DULOXETINE HYDROCHLORIDE
     Dosage: CYMBALTA 30 MG 2-1-0
     Route: 048
     Dates: start: 2011, end: 20190816
  5. NEXIUM MUPS 40 MG COMPRIMIDOS GASTRORRESISTENTES , 28 COMPRIMIDOS [Concomitant]
     Dosage: 28 TABLETS
     Route: 048
  6. CLOPIDOGREL 75 MG 28 COMPRIMIDOS [Suspect]
     Active Substance: CLOPIDOGREL BISULFATE
     Indication: CEREBRAL THROMBOSIS
     Dosage: 1 EVERY 24 HOURS. 0-1-0; 28 TABLETS; 75 MG PER 243 HOURS
     Route: 048
     Dates: start: 201306
  7. CYMBALTA [Interacting]
     Active Substance: DULOXETINE HYDROCHLORIDE
     Dosage: CYMBALTA 60 MG FAT-RESISTANT CAPSULES: 60 MG ORAL EVERY 24 HOURS, AS PRESCRIBED ON 08/16/19 IN ELECT
     Route: 048
     Dates: start: 20190816
  8. DILUTOL 10 MG COMPRIMIDOS, 30 COMPRIMIDOS [Concomitant]
     Dosage: 30 TABLETS
     Route: 048
  9. DEPRAX 100 MG COMPRIMIDOS RECUBIERTOS CON PELICULA EFG [Concomitant]
     Route: 048
  10. SUMIAL 40 MG COMPRIMIDOS RECUBIERTOS CON PELICULA , 50 COMPRIMIDOS [Concomitant]
     Dosage: 50 TABLETS
     Route: 048

REACTIONS (2)
  - Seizure [Recovered/Resolved]
  - Drug interaction [Unknown]

NARRATIVE: CASE EVENT DATE: 20190817
